FAERS Safety Report 14740211 (Version 3)
Quarter: 2019Q3

REPORT INFORMATION
  Report Type: Spontaneous
  Country: US (occurrence: US)
  Receive Date: 20180410
  Receipt Date: 20190903
  Transmission Date: 20191004
  Serious: Yes (Death)
  Sender: FDA-Public Use
  Company Number: US-PFIZER INC-2018141784

PATIENT
  Age: 54 Year
  Sex: Female

DRUGS (3)
  1. XGEVA [Suspect]
     Active Substance: DENOSUMAB
     Dosage: UNK (EVERY 28 DAYS)
  2. LETROZOLE. [Concomitant]
     Active Substance: LETROZOLE
     Dosage: 2.5 MG, UNK
     Dates: end: 201901
  3. IBRANCE [Suspect]
     Active Substance: PALBOCICLIB
     Indication: BREAST CANCER FEMALE
     Dosage: 125 MG, CYCLIC (1 CAPSULE BY MOUTH ON DAY 1-21 THEN 7 DAYS OFF WITH FOOD, AVOID GRAPE FRUIT)
     Route: 048
     Dates: start: 201811, end: 201901

REACTIONS (3)
  - Fatigue [Unknown]
  - Death [Fatal]
  - Influenza like illness [Unknown]

NARRATIVE: CASE EVENT DATE: 20190826
